FAERS Safety Report 5026492-5 (Version None)
Quarter: 2006Q2

REPORT INFORMATION
  Report Type: 
  Country: None (occurrence: None)
  Receive Date: 20060615
  Receipt Date: 20060512
  Transmission Date: 20061013
  Serious: Yes (Hospitalization)
  Sender: FDA-Public Use
  Company Number: 2006CG00859

PATIENT
  Age: 26744 Day
  Sex: Male
  Weight: 72 kg

DRUGS (7)
  1. IRESSA [Suspect]
     Indication: SQUAMOUS CELL CARCINOMA
     Route: 048
     Dates: start: 20060313
  2. CISPLATIN [Suspect]
     Indication: SQUAMOUS CELL CARCINOMA
     Dosage: 100 MG/M? AT DAY 1, DAY 22 AND DAY 43 OF RADIOTHERAPY.
     Route: 042
     Dates: start: 20060320
  3. RADIOTHERAPY [Suspect]
     Indication: SQUAMOUS CELL CARCINOMA
     Dosage: 2 GY PER DAY 5 DAYS PER WEEK
     Dates: start: 20060320
  4. NEXIUM [Concomitant]
     Route: 048
  5. ATARAX [Concomitant]
     Route: 048
  6. TRANXENE [Concomitant]
     Route: 048
  7. LOVENOX [Concomitant]
     Route: 058

REACTIONS (2)
  - DIARRHOEA [None]
  - RENAL FAILURE [None]
